FAERS Safety Report 9631004 (Version 2)
Quarter: 2013Q4

REPORT INFORMATION
  Report Type: Spontaneous
  Country: US (occurrence: US)
  Receive Date: 20131018
  Receipt Date: 20131024
  Transmission Date: 20140711
  Serious: Yes (Life-Threatening, Hospitalization, Other)
  Sender: FDA-Public Use
  Company Number: US-JNJFOC-20131008204

PATIENT
  Age: 41 Year
  Sex: Female
  Weight: 113.4 kg

DRUGS (17)
  1. SUDAFED [Suspect]
     Indication: SINUS CONGESTION
     Route: 065
     Dates: start: 2010
  2. FLOVENT [Suspect]
     Indication: ASTHMA
     Route: 055
  3. FLOVENT [Suspect]
     Indication: ASTHMA
     Route: 055
  4. FLONASE NASAL SPRAY [Suspect]
     Indication: SINUSITIS
     Route: 045
     Dates: start: 20121203, end: 20121215
  5. FLONASE NASAL SPRAY [Suspect]
     Indication: SINUSITIS
     Route: 045
     Dates: start: 20121203, end: 20121215
  6. ALBUTEROL SULPHATE [Suspect]
     Indication: ASTHMA
     Dosage: 1-2 PUFFS
     Route: 055
     Dates: start: 2003
  7. LEVETIRACETAM [Suspect]
     Indication: EPILEPSY
     Route: 065
     Dates: start: 2000
  8. DESVENLAFAXINE SUCCINATE [Suspect]
     Indication: POST-TRAUMATIC STRESS DISORDER
     Route: 065
     Dates: start: 2004
  9. TRAZODONE [Suspect]
     Indication: INSOMNIA
     Route: 065
     Dates: start: 2002
  10. MONTELUKAST SODIUM [Suspect]
     Indication: ASTHMA
     Route: 065
     Dates: start: 2004
  11. CLARITHROMYCIN [Suspect]
     Indication: BRONCHITIS
     Route: 065
     Dates: start: 20121201, end: 20121205
  12. TEMAZEPAM [Concomitant]
     Indication: PRODUCT USED FOR UNKNOWN INDICATION
     Route: 065
  13. FIORICET [Concomitant]
     Indication: PRODUCT USED FOR UNKNOWN INDICATION
     Route: 065
  14. AMOXICILLIN TRIHYDRATE [Concomitant]
     Indication: PRODUCT USED FOR UNKNOWN INDICATION
     Route: 065
  15. VITAMIN D [Concomitant]
     Indication: PRODUCT USED FOR UNKNOWN INDICATION
     Route: 065
  16. MULTIVITAMINS [Concomitant]
     Indication: PRODUCT USED FOR UNKNOWN INDICATION
     Route: 065
  17. PREDNISONE [Concomitant]
     Indication: PRODUCT USED FOR UNKNOWN INDICATION
     Route: 065

REACTIONS (6)
  - Exposure during pregnancy [Unknown]
  - Pre-eclampsia [Recovered/Resolved]
  - Infection [Unknown]
  - Induced labour [Recovered/Resolved]
  - Pyrexia [Unknown]
  - Epistaxis [Recovering/Resolving]
